FAERS Safety Report 10328371 (Version 4)
Quarter: 2014Q4

REPORT INFORMATION
  Report Type: Spontaneous
  Country: JP (occurrence: None)
  Receive Date: 20140717
  Receipt Date: 20141014
  Transmission Date: 20150528
  Serious: Yes (Other)
  Sender: FDA-Public Use
  Company Number: 2014-JP-0051

PATIENT
  Age: 41 Year
  Sex: Female

DRUGS (2)
  1. NOLVADEX [Suspect]
     Active Substance: TAMOXIFEN CITRATE
     Indication: BREAST CANCER
     Dosage: 20 MG X 1 PER 1 DAY
     Route: 048
     Dates: start: 200102, end: 200303
  2. FARESTON [Suspect]
     Active Substance: TOREMIFENE CITRATE
     Indication: BREAST CANCER
     Dosage: TABLET; 40 MG X 1 PER 1 DAY, ORAL
     Route: 048
     Dates: start: 200304, end: 200509

REACTIONS (1)
  - Endometrial cancer [None]

NARRATIVE: CASE EVENT DATE: 200509
